FAERS Safety Report 9011144 (Version 1)
Quarter: 2013Q1

REPORT INFORMATION
  Report Type: Spontaneous
  Country: JP (occurrence: JP)
  Receive Date: 20130109
  Receipt Date: 20130109
  Transmission Date: 20140127
  Serious: Yes (Hospitalization)
  Sender: FDA-Public Use
  Company Number: JP-SANOFI-AVENTIS-2010SA020734

PATIENT
  Age: 83 Year
  Sex: Male
  Weight: 58 kg

DRUGS (8)
  1. PLAVIX [Suspect]
     Indication: BRAIN STEM INFARCTION
     Route: 048
     Dates: start: 200903, end: 20091118
  2. OLMESARTAN [Concomitant]
  3. ALLOPURINOL [Concomitant]
  4. AMLODIPINE [Concomitant]
  5. GEFARNATE [Concomitant]
  6. MECOBALAMIN [Concomitant]
  7. ASPIRIN [Concomitant]
  8. ETIZOLAM [Concomitant]

REACTIONS (6)
  - Eosinophilic pneumonia [Recovered/Resolved]
  - Cough [Recovered/Resolved]
  - Eosinophil count increased [Recovered/Resolved]
  - Red blood cell sedimentation rate increased [Recovered/Resolved]
  - Blood immunoglobulin E increased [Recovering/Resolving]
  - Pleural effusion [Recovered/Resolved]
